FAERS Safety Report 19478890 (Version 6)
Quarter: 2021Q4

REPORT INFORMATION
  Report Type: Report from Study
  Country: BR (occurrence: BR)
  Receive Date: 20210630
  Receipt Date: 20211116
  Transmission Date: 20220304
  Serious: Yes (Hospitalization, Other)
  Sender: FDA-Public Use
  Company Number: NVSC2020BR329999

PATIENT
  Age: 50 Year
  Sex: Female

DRUGS (10)
  1. KISQALI [Suspect]
     Active Substance: RIBOCICLIB
     Indication: Breast cancer metastatic
     Dosage: 3 DF
     Route: 065
     Dates: start: 20201006
  2. KISQALI [Suspect]
     Active Substance: RIBOCICLIB
     Dosage: UNK (IN USE)
     Route: 065
     Dates: start: 20201009
  3. KISQALI [Suspect]
     Active Substance: RIBOCICLIB
     Dosage: UNK (IN USE)
     Route: 065
     Dates: start: 20201009
  4. KISQALI [Suspect]
     Active Substance: RIBOCICLIB
     Dosage: UNK (IN USE)
     Route: 065
     Dates: start: 20201204
  5. KISQALI [Suspect]
     Active Substance: RIBOCICLIB
     Dosage: 3 DF (21 DAYS AND 7 DAYS OF PAUSE)
     Route: 065
     Dates: start: 20201009
  6. KISQALI [Suspect]
     Active Substance: RIBOCICLIB
     Dosage: 3 DF, QD
     Route: 065
     Dates: start: 20201009
  7. KISQALI [Suspect]
     Active Substance: RIBOCICLIB
     Dosage: 3 DF, QD
     Route: 065
     Dates: start: 20201009
  8. KISQALI [Suspect]
     Active Substance: RIBOCICLIB
     Dosage: 3 DF (21 DAYS AND 7 DAYS OF PAUSE)
     Route: 065
     Dates: start: 202010
  9. KISQALI [Suspect]
     Active Substance: RIBOCICLIB
     Dosage: UNK
     Route: 065
     Dates: end: 20211008
  10. TAXOL [Suspect]
     Active Substance: PACLITAXEL
     Indication: Product used for unknown indication
     Dosage: UNK
     Route: 065

REACTIONS (28)
  - Breast cancer [Unknown]
  - Arthralgia [Recovered/Resolved]
  - Malignant neoplasm of spinal cord [Recovered/Resolved]
  - Bone cancer [Recovered/Resolved]
  - Neoplasm malignant [Not Recovered/Not Resolved]
  - Decreased immune responsiveness [Unknown]
  - Pain in extremity [Unknown]
  - Arthralgia [Unknown]
  - Alopecia [Recovered/Resolved]
  - White blood cell count increased [Recovering/Resolving]
  - Fear [Unknown]
  - Feeling of despair [Unknown]
  - Nodule [Unknown]
  - Hypersensitivity [Not Recovered/Not Resolved]
  - Limb injury [Unknown]
  - Sleep disorder [Unknown]
  - Breast disorder [Not Recovered/Not Resolved]
  - Sinusitis [Unknown]
  - Pruritus [Recovered/Resolved]
  - Pyrexia [Recovered/Resolved]
  - Sinus disorder [Recovering/Resolving]
  - Swelling [Recovering/Resolving]
  - Breast inflammation [Recovering/Resolving]
  - COVID-19 [Recovered/Resolved]
  - Cough [Recovered/Resolved]
  - Back pain [Recovered/Resolved]
  - Anaemia [Unknown]
  - Erythema [Recovering/Resolving]

NARRATIVE: CASE EVENT DATE: 20201001
